FAERS Safety Report 7996819 (Version 2)
Quarter: 2012Q4

REPORT INFORMATION
  Report Type: 
  Country: CA (occurrence: CA)
  Receive Date: 20110617
  Receipt Date: 20121114
  Transmission Date: 20130627
  Serious: Yes (Life-Threatening)
  Sender: FDA-Public Use
  Company Number: PHBS2001CA07386

PATIENT
  Age: 79 Year
  Sex: Female

DRUGS (4)
  1. EXELON [Suspect]
     Indication: DEMENTIA ALZHEIMER^S TYPE
     Route: 048
     Dates: start: 20010521
  2. EXELON [Suspect]
     Dosage: 1.5 mg, BID
  3. EXELON [Suspect]
     Dosage: 3 mg, BID
     Route: 048
     Dates: start: 20010621
  4. EXELON [Suspect]
     Dosage: 4.5 mg, BID

REACTIONS (5)
  - Cardiac failure congestive [Not Recovered/Not Resolved]
  - Dyspnoea [Recovered/Resolved]
  - Nausea [Recovered/Resolved]
  - Hypertension [Recovered/Resolved]
  - Vomiting [Recovered/Resolved]
